FAERS Safety Report 11102266 (Version 1)
Quarter: 2015Q2

REPORT INFORMATION
  Report Type: Spontaneous
  Country: IE (occurrence: IE)
  Receive Date: 20150511
  Receipt Date: 20150511
  Transmission Date: 20150821
  Serious: Yes (Disabling, Other)
  Sender: FDA-Public Use
  Company Number: IE-009507513-1505GBR002507

PATIENT
  Sex: Female

DRUGS (2)
  1. FOSAVANCE [Suspect]
     Active Substance: ALENDRONATE SODIUM\CHOLECALCIFEROL
     Route: 048
  2. ROLPRYNA [Concomitant]

REACTIONS (5)
  - Dyspepsia [Unknown]
  - Dysphagia [Unknown]
  - Hip fracture [Unknown]
  - Multiple fractures [Unknown]
  - Pollakiuria [Unknown]
